FAERS Safety Report 9680649 (Version 1)
Quarter: 2013Q4

REPORT INFORMATION
  Report Type: Spontaneous
  Country: US (occurrence: US)
  Receive Date: 20131111
  Receipt Date: 20131111
  Transmission Date: 20140711
  Serious: No
  Sender: FDA-Public Use
  Company Number: US-PFIZER INC-2013320887

PATIENT
  Sex: Male

DRUGS (1)
  1. GABAPENTIN [Suspect]
     Dosage: 800 MG, UNK

REACTIONS (6)
  - Depression [Unknown]
  - Anxiety [Unknown]
  - Anger [Unknown]
  - Aggression [Unknown]
  - Coordination abnormal [Unknown]
  - Dyskinesia [Unknown]
